FAERS Safety Report 7133450-3 (Version None)
Quarter: 2010Q4

REPORT INFORMATION
  Report Type: 
  Country: None (occurrence: None)
  Receive Date: 20101202
  Receipt Date: 20101124
  Transmission Date: 20110411
  Serious: Yes (Other)
  Sender: FDA-Public Use
  Company Number: ES-GILEAD-2010-0033841

PATIENT
  Sex: Male

DRUGS (3)
  1. TRUVADA [Suspect]
     Indication: HIV INFECTION
  2. COMBIVIR [Concomitant]
  3. NEVIRAPINE [Concomitant]

REACTIONS (1)
  - TINNITUS [None]
